FAERS Safety Report 9656481 (Version 1)
Quarter: 2013Q4

REPORT INFORMATION
  Report Type: Spontaneous
  Country: GB (occurrence: None)
  Receive Date: 20131028
  Receipt Date: 20131028
  Transmission Date: 20140711
  Serious: Yes (Hospitalization)
  Sender: FDA-Public Use
  Company Number: ABR_01207_2013

PATIENT
  Age: 76 Year
  Sex: Female

DRUGS (1)
  1. NITROLINGUAL [Suspect]
     Indication: PRODUCT USED FOR UNKNOWN INDICATION
     Route: 060

REACTIONS (2)
  - Posture abnormal [None]
  - Unresponsive to stimuli [None]
